FAERS Safety Report 25192535 (Version 1)
Quarter: 2025Q2

REPORT INFORMATION
  Report Type: Spontaneous
  Country: JP (occurrence: JP)
  Receive Date: 20250414
  Receipt Date: 20250414
  Transmission Date: 20250716
  Serious: Yes (Hospitalization, Other)
  Sender: NOVARTIS
  Company Number: JP-002147023-NVSJ2025JP003397

PATIENT
  Age: 78 Year
  Sex: Female

DRUGS (2)
  1. ELTROMBOPAG OLAMINE [Suspect]
     Active Substance: ELTROMBOPAG OLAMINE
     Indication: Immune thrombocytopenia
     Dosage: 12.5 MG, QW3
     Route: 048
  2. ELTROMBOPAG OLAMINE [Suspect]
     Active Substance: ELTROMBOPAG OLAMINE
     Dosage: 12.5 MG, QW3, SUSPENSION VIA TUBE
     Route: 050

REACTIONS (6)
  - Thyroid disorder [Unknown]
  - Paralysis [Unknown]
  - Platelet count decreased [Unknown]
  - Muscular weakness [Unknown]
  - Dysphagia [Unknown]
  - Wrong technique in product usage process [Unknown]
